FAERS Safety Report 15724638 (Version 4)
Quarter: 2019Q1

REPORT INFORMATION
  Report Type: Report from Study
  Country: CA (occurrence: CA)
  Receive Date: 20181214
  Receipt Date: 20190107
  Transmission Date: 20190417
  Serious: Yes (Other)
  Sender: FDA-Public Use
  Company Number: PHHY2018CA036761

PATIENT
  Age: 79 Year
  Sex: Male

DRUGS (2)
  1. ATENOLOL. [Suspect]
     Active Substance: ATENOLOL
     Indication: HYPERTENSION
     Dosage: 25 MG, QD
     Route: 065
  2. SANDOSTATIN LAR DEPOT [Suspect]
     Active Substance: OCTREOTIDE ACETATE
     Indication: ACROMEGALY
     Dosage: 20 MG, QMO
     Route: 030
     Dates: start: 20180203

REACTIONS (10)
  - Pulse abnormal [Unknown]
  - Frequent bowel movements [Unknown]
  - Heart rate decreased [Unknown]
  - Weight decreased [Unknown]
  - Peripheral coldness [Unknown]
  - Vision blurred [Unknown]
  - Constipation [Unknown]
  - Blood growth hormone decreased [Unknown]
  - Nephrolithiasis [Unknown]
  - Blood pressure systolic increased [Unknown]

NARRATIVE: CASE EVENT DATE: 201802
